FAERS Safety Report 24123107 (Version 1)
Quarter: 2024Q3

REPORT INFORMATION
  Report Type: Spontaneous
  Country: US (occurrence: US)
  Receive Date: 20240723
  Receipt Date: 20240723
  Transmission Date: 20241016
  Serious: No
  Sender: ROCHE
  Company Number: US-ROCHE-10000026212

PATIENT
  Age: 74 Year
  Sex: Female

DRUGS (2)
  1. VABYSMO [Suspect]
     Active Substance: FARICIMAB\FARICIMAB-SVOA
     Indication: Product used for unknown indication
     Route: 050
     Dates: start: 20240708
  2. LATANOPROST [Concomitant]
     Active Substance: LATANOPROST

REACTIONS (4)
  - Eye haemorrhage [Recovering/Resolving]
  - Eye injury [Unknown]
  - Anxiety [Recovering/Resolving]
  - Visual impairment [Recovering/Resolving]

NARRATIVE: CASE EVENT DATE: 20240708
